FAERS Safety Report 5292530-8 (Version None)
Quarter: 2007Q2

REPORT INFORMATION
  Report Type: 
  Country: None (occurrence: None)
  Receive Date: 20070410
  Receipt Date: 20070329
  Transmission Date: 20071010
  Serious: Yes (Other)
  Sender: FDA-Public Use
  Company Number: US-PFIZER INC-2007026494

PATIENT
  Sex: Male
  Weight: 95.3 kg

DRUGS (14)
  1. CHANTIX [Suspect]
     Indication: EX-SMOKER
  2. ZETIA [Concomitant]
  3. NEXIUM [Concomitant]
  4. BENICAR HCT [Concomitant]
  5. ATENOLOL [Concomitant]
  6. DYNACIRC [Concomitant]
  7. ASPIRIN [Concomitant]
  8. SERTRALINE [Concomitant]
  9. CYCLOBENZAPRINE HCL [Concomitant]
  10. CELEBREX [Concomitant]
  11. LIPITOR [Concomitant]
  12. LOTREL [Concomitant]
  13. LORTAB [Concomitant]
  14. VIAGRA [Concomitant]

REACTIONS (2)
  - HYPOAESTHESIA ORAL [None]
  - LIP SWELLING [None]
